FAERS Safety Report 13156574 (Version 1)
Quarter: 2017Q1

REPORT INFORMATION
  Report Type: Spontaneous
  Country: US (occurrence: US)
  Receive Date: 20170126
  Receipt Date: 20170126
  Transmission Date: 20170428
  Serious: Yes (Other)
  Sender: FDA-Public Use
  Company Number: US-ALLERGAN-1702913US

PATIENT
  Age: 67 Year
  Sex: Male
  Weight: 97.51 kg

DRUGS (1)
  1. COMBIGAN [Suspect]
     Active Substance: BRIMONIDINE TARTRATE\TIMOLOL MALEATE
     Indication: INTRAOCULAR PRESSURE INCREASED
     Dosage: 2 GTT, BID
     Route: 047
     Dates: start: 2014, end: 2014

REACTIONS (3)
  - Ocular hyperaemia [Recovered/Resolved]
  - Lens dislocation [Recovered/Resolved]
  - Lens dislocation [Not Recovered/Not Resolved]

NARRATIVE: CASE EVENT DATE: 2014
